FAERS Safety Report 7645460-8 (Version None)
Quarter: 2011Q3

REPORT INFORMATION
  Report Type: 
  Country: None (occurrence: None)
  Receive Date: 20110729
  Receipt Date: 20110718
  Transmission Date: 20111222
  Serious: Yes (Death)
  Sender: FDA-Public Use
  Company Number: US-ELI_LILLY_AND_COMPANY-US201106003824

PATIENT
  Sex: Female

DRUGS (7)
  1. LORATADINE [Concomitant]
  2. ZYPREXA [Suspect]
     Dosage: 7.5 MG, QD
     Dates: start: 20101213
  3. SIMVASTATIN [Concomitant]
  4. LOPERAMIDE HCL [Concomitant]
  5. SYNTHROID [Concomitant]
  6. GLIMEPIRIDE [Concomitant]
  7. ARICEPT [Concomitant]

REACTIONS (1)
  - CEREBROVASCULAR ACCIDENT [None]
